FAERS Safety Report 11837858 (Version 4)
Quarter: 2016Q2

REPORT INFORMATION
  Report Type: Report from Study
  Country: US (occurrence: US)
  Receive Date: 20151215
  Receipt Date: 20160627
  Transmission Date: 20160815
  Serious: No
  Sender: FDA-Public Use
  Company Number: PHEH2015US026112

PATIENT
  Sex: Female

DRUGS (4)
  1. EXTAVIA [Suspect]
     Active Substance: INTERFERON BETA-1B
     Dosage: 0.125 MG, QOD (0.5 ML), (WEEK 3 TO 4)
     Route: 058
  2. EXTAVIA [Suspect]
     Active Substance: INTERFERON BETA-1B
     Dosage: 0.187 MG, QOD (0.75 ML), (WEEK 5 TO 6)
     Route: 058
  3. EXTAVIA [Suspect]
     Active Substance: INTERFERON BETA-1B
     Dosage: 0.25 MG, QOD (1 ML), (WEEK 7 +)
     Route: 058
  4. EXTAVIA [Suspect]
     Active Substance: INTERFERON BETA-1B
     Indication: MULTIPLE SCLEROSIS
     Dosage: 0.0625 MG, QOD (0.25 ML), (WEEK 1 TO 2)
     Route: 058
     Dates: start: 20151123

REACTIONS (8)
  - Contusion [Unknown]
  - Influenza like illness [Unknown]
  - Blood disorder [Unknown]
  - Injection site pain [Unknown]
  - Pain in extremity [Unknown]
  - Chills [Unknown]
  - Weight increased [Unknown]
  - Nasopharyngitis [Unknown]
